FAERS Safety Report 5222342-2 (Version None)
Quarter: 2007Q1

REPORT INFORMATION
  Report Type: 
  Country: None (occurrence: None)
  Receive Date: 20070129
  Receipt Date: 20070117
  Transmission Date: 20070707
  Serious: No
  Sender: FDA-Public Use
  Company Number: JP-MERCK-0612USA00762

PATIENT
  Age: 81 Year
  Sex: Female
  Weight: 57 kg

DRUGS (2)
  1. FOSAMAX [Suspect]
     Indication: OSTEOPOROSIS
     Route: 048
     Dates: start: 20061104, end: 20061126
  2. SELTOUCH [Concomitant]
     Route: 061
     Dates: start: 20061017

REACTIONS (3)
  - ANOREXIA [None]
  - HYPOAESTHESIA [None]
  - SPINAL OSTEOARTHRITIS [None]
